FAERS Safety Report 4322852-6 (Version None)
Quarter: 2004Q1

REPORT INFORMATION
  Report Type: 
  Country: None (occurrence: None)
  Receive Date: 20040322
  Receipt Date: 20040310
  Transmission Date: 20041129
  Serious: Yes (Other)
  Sender: FDA-Public Use
  Company Number: LTI2004A00055

PATIENT
  Sex: Male

DRUGS (2)
  1. LEUPROLIDE ACETATE [Suspect]
     Indication: PROSTATE CANCER
     Dosage: 11.25 MG (11.25 MG, 1 IN 3 M);SUBCUTANEOUS
     Route: 058
     Dates: start: 20020814
  2. FLUTAMIDE [Concomitant]

REACTIONS (1)
  - COLON CANCER [None]
